FAERS Safety Report 6786374-5 (Version None)
Quarter: 2010Q2

REPORT INFORMATION
  Report Type: 
  Country: None (occurrence: None)
  Receive Date: 20100623
  Receipt Date: 20100610
  Transmission Date: 20101027
  Serious: Yes (Other)
  Sender: FDA-Public Use
  Company Number: PHHY2010IE37195

PATIENT
  Sex: Female

DRUGS (4)
  1. ZOMETA [Suspect]
     Dosage: UNK
     Dates: start: 20090101
  2. ZOMETA [Suspect]
     Dosage: UNK
     Dates: start: 20090801
  3. ZOMETA [Suspect]
     Dosage: UNK
     Dates: start: 20100203
  4. STEROIDS NOS [Suspect]

REACTIONS (14)
  - ALANINE AMINOTRANSFERASE INCREASED [None]
  - ARTHRALGIA [None]
  - ARTHROPATHY [None]
  - BLOOD CREATININE INCREASED [None]
  - BLOOD UREA DECREASED [None]
  - BLOOD URIC ACID INCREASED [None]
  - GAIT DISTURBANCE [None]
  - GAMMA-GLUTAMYLTRANSFERASE INCREASED [None]
  - JOINT SWELLING [None]
  - MOBILITY DECREASED [None]
  - MYALGIA [None]
  - SERONEGATIVE ARTHRITIS [None]
  - SYNOVITIS [None]
  - WEIGHT BEARING DIFFICULTY [None]
